FAERS Safety Report 21216684 (Version 1)
Quarter: 2022Q3

REPORT INFORMATION
  Report Type: Spontaneous
  Country: US (occurrence: None)
  Receive Date: 20220815
  Receipt Date: 20220815
  Transmission Date: 20221026
  Serious: Yes (Other)
  Sender: FDA-Public Use
  Company Number: None

PATIENT
  Age: 51 Year
  Sex: Female

DRUGS (2)
  1. MIGRAINE RELIEF (ACETAMINOPHEN\ASPIRIN\CAFFEINE) [Suspect]
     Active Substance: ACETAMINOPHEN\ASPIRIN\CAFFEINE
     Indication: Headache
     Dosage: OTHER QUANTITY : 2 CAPSULE(S);?FREQUENCY : DAILY;?
     Route: 048
  2. OTC HEADACHE PRODUCTS [Concomitant]

REACTIONS (1)
  - Product odour abnormal [None]

NARRATIVE: CASE EVENT DATE: 20220815
